FAERS Safety Report 6391240-3 (Version None)
Quarter: 2009Q4

REPORT INFORMATION
  Report Type: 
  Country: None (occurrence: None)
  Receive Date: 20091007
  Receipt Date: 20070406
  Transmission Date: 20100525
  Serious: Yes (Other)
  Sender: FDA-Public Use
  Company Number: US-ASTRAZENECA-2006UW27960

PATIENT
  Age: 47 Year
  Sex: Female
  Weight: 97.1 kg

DRUGS (13)
  1. SEROQUEL [Suspect]
     Indication: DEPRESSION
     Dosage: 25MG TO 100MG
     Route: 048
     Dates: start: 19990304
  2. SEROQUEL [Suspect]
     Indication: SCHIZOPHRENIA
     Dosage: 25MG TO 100MG
     Route: 048
     Dates: start: 19990304
  3. SEROQUEL [Suspect]
     Route: 048
     Dates: start: 19990620
  4. SEROQUEL [Suspect]
     Route: 048
     Dates: start: 19990620
  5. RISPERDAL [Concomitant]
     Dates: start: 19950101
  6. ZYPREXA/SYMBYAX (OLANZAPINE) [Concomitant]
     Dates: start: 19980101
  7. ZOLOFT [Concomitant]
     Dosage: 100MG TO 150MG
     Dates: start: 19990304
  8. LITHIUM [Concomitant]
     Route: 048
     Dates: start: 19990720
  9. AMARYL [Concomitant]
     Dosage: 2MG TO 3MG
     Route: 048
     Dates: start: 20010710
  10. COUMADIN [Concomitant]
     Dosage: 10MG AND 12.5MG ALTERNATE DAY
     Dates: start: 20020615
  11. PRILOSEC [Concomitant]
     Dates: start: 19990720
  12. PREMARIN [Concomitant]
     Dates: start: 19990621
  13. CELEBREX [Concomitant]
     Dates: start: 19990621

REACTIONS (16)
  - AORTIC VALVE INCOMPETENCE [None]
  - ATRIAL SEPTAL DEFECT [None]
  - CARDIAC ANEURYSM [None]
  - CARDIAC DISORDER [None]
  - DIABETES MELLITUS [None]
  - DIABETES MELLITUS INADEQUATE CONTROL [None]
  - DIABETIC NEUROPATHY [None]
  - DIASTOLIC DYSFUNCTION [None]
  - HYPOKINESIA [None]
  - ISCHAEMIA [None]
  - LEFT VENTRICULAR HYPERTROPHY [None]
  - MITRAL VALVE INCOMPETENCE [None]
  - MYOCARDIAL ISCHAEMIA [None]
  - PULMONARY VALVE INCOMPETENCE [None]
  - TRICUSPID VALVE INCOMPETENCE [None]
  - TYPE 2 DIABETES MELLITUS [None]
